FAERS Safety Report 18936455 (Version 1)
Quarter: 2021Q1

REPORT INFORMATION
  Report Type: Spontaneous
  Country: US (occurrence: US)
  Receive Date: 20210225
  Receipt Date: 20210225
  Transmission Date: 20210420
  Serious: Yes (Other)
  Sender: FDA-Public Use
  Company Number: US-CADILA HEALTHCARE LIMITED-US-ZYDUS-062191

PATIENT

DRUGS (6)
  1. PROPOFOL. [Concomitant]
     Active Substance: PROPOFOL
     Indication: SEDATION
     Dosage: UNK
  2. MARCAINE [Suspect]
     Active Substance: BUPIVACAINE HYDROCHLORIDE
     Indication: SPINAL ANAESTHESIA
     Dosage: 2.5 MILLIGRAM
     Route: 037
  3. EPINEPHRINE. [Concomitant]
     Active Substance: EPINEPHRINE
     Indication: SPINAL ANAESTHESIA
     Dosage: 200 MICROGRAM
     Route: 037
  4. ENOXAPARIN [Concomitant]
     Active Substance: ENOXAPARIN
     Indication: PROPHYLAXIS
     Dosage: UNK
  5. CLONIDINE. [Suspect]
     Active Substance: CLONIDINE
     Indication: SPINAL ANAESTHESIA
     Dosage: UNK (1.67 MICROGRAM PER MILLILITRE)
     Route: 037
  6. SUBLIMAZE [Suspect]
     Active Substance: FENTANYL CITRATE
     Indication: SPINAL ANAESTHESIA
     Dosage: 20 MICROGRAM
     Route: 037

REACTIONS (1)
  - Radiculopathy [Recovering/Resolving]
